FAERS Safety Report 14758188 (Version 2)
Quarter: 2020Q2

REPORT INFORMATION
  Report Type: Spontaneous
  Country: US (occurrence: US)
  Receive Date: 20180413
  Receipt Date: 20200421
  Transmission Date: 20200713
  Serious: Yes (Death, Hospitalization, Other)
  Sender: FDA-Public Use
  Company Number: US-009507513-1804USA006021

PATIENT
  Sex: Female

DRUGS (2)
  1. JANUMET XR [Suspect]
     Active Substance: METFORMIN HYDROCHLORIDE\SITAGLIPTIN PHOSPHATE
     Indication: TYPE 2 DIABETES MELLITUS
     Dosage: 50-500 MG, QD
     Route: 048
     Dates: start: 20170410, end: 201704
  2. JANUVIA [Suspect]
     Active Substance: SITAGLIPTIN PHOSPHATE
     Indication: TYPE 2 DIABETES MELLITUS
     Dosage: 100 MILLIGRAM, QD
     Route: 048
     Dates: start: 20140904, end: 201412

REACTIONS (8)
  - Infection [Unknown]
  - Pancreatic carcinoma [Fatal]
  - Cardio-respiratory arrest [Fatal]
  - Nausea [Unknown]
  - Vomiting [Unknown]
  - Back pain [Unknown]
  - Depression [Unknown]
  - Inappropriate schedule of product administration [Unknown]

NARRATIVE: CASE EVENT DATE: 2016
